FAERS Safety Report 10471952 (Version 4)
Quarter: 2014Q4

REPORT INFORMATION
  Report Type: Spontaneous
  Country: US (occurrence: US)
  Receive Date: 20140924
  Receipt Date: 20141029
  Transmission Date: 20150528
  Serious: Yes (Hospitalization, Other)
  Sender: FDA-Public Use
  Company Number: US-UNITED THERAPEUTICS-UNT-2014-007750

PATIENT
  Age: 66 Year
  Sex: Female
  Weight: 158.73 kg

DRUGS (7)
  1. WARFARIN [Concomitant]
     Active Substance: WARFARIN
     Indication: PRODUCT USED FOR UNKNOWN INDICATION
  2. REMODULIN [Suspect]
     Active Substance: TREPROSTINIL
     Indication: PULMONARY ARTERIAL HYPERTENSION
     Dosage: 0.02775 ?G/KG, CONTINUING
     Route: 058
     Dates: start: 20130925
  3. REMODULIN [Suspect]
     Active Substance: TREPROSTINIL
     Dosage: UNK, CONTINUING
     Route: 058
     Dates: start: 20091021
  4. REMODULIN [Suspect]
     Active Substance: TREPROSTINIL
     Dosage: 0.035 ?G/KG, CONTINUING
     Route: 058
     Dates: start: 20091021
  5. REVATIO [Concomitant]
     Active Substance: SILDENAFIL CITRATE
     Indication: PRODUCT USED FOR UNKNOWN INDICATION
  6. LETAIRIS [Concomitant]
     Active Substance: AMBRISENTAN
     Indication: PRODUCT USED FOR UNKNOWN INDICATION
  7. ASPIRIN. [Concomitant]
     Active Substance: ASPIRIN
     Indication: PRODUCT USED FOR UNKNOWN INDICATION

REACTIONS (10)
  - Respiratory distress [Unknown]
  - Bladder cancer [Unknown]
  - Pain in extremity [Unknown]
  - Gingival pain [Unknown]
  - Dyspnoea [Unknown]
  - Chest discomfort [Unknown]
  - Renal disorder [Unknown]
  - Rectal haemorrhage [Unknown]
  - Thrombosis [Unknown]
  - Bladder neoplasm surgery [Unknown]

NARRATIVE: CASE EVENT DATE: 2014
